FAERS Safety Report 9996473 (Version 1)
Quarter: 2014Q1

REPORT INFORMATION
  Report Type: Spontaneous
  Country: DE (occurrence: DE)
  Receive Date: 20140311
  Receipt Date: 20140311
  Transmission Date: 20141002
  Serious: Yes (Other)
  Sender: FDA-Public Use
  Company Number: DE-TEVA-466884GER

PATIENT
  Sex: 0

DRUGS (1)
  1. COPAXONE [Suspect]
     Dates: start: 201112

REACTIONS (10)
  - Quadriparesis [Not Recovered/Not Resolved]
  - Balance disorder [Not Recovered/Not Resolved]
  - Fine motor delay [Not Recovered/Not Resolved]
  - Cognitive disorder [Not Recovered/Not Resolved]
  - Fatigue [Not Recovered/Not Resolved]
  - Dysaesthesia [Not Recovered/Not Resolved]
  - Pain in extremity [Not Recovered/Not Resolved]
  - Muscular weakness [Not Recovered/Not Resolved]
  - Gait disturbance [Not Recovered/Not Resolved]
  - Muscle twitching [Not Recovered/Not Resolved]
